FAERS Safety Report 8935476 (Version 1)
Quarter: 2012Q4

REPORT INFORMATION
  Report Type: Spontaneous
  Country: US (occurrence: None)
  Receive Date: 20121128
  Receipt Date: 20121128
  Transmission Date: 20130627
  Serious: Yes (Hospitalization)
  Sender: FDA-Public Use
  Company Number: None

PATIENT
  Age: 60 Year
  Sex: Female
  Weight: 87.7 kg

DRUGS (6)
  1. LISINOPRIL [Suspect]
     Indication: HYPERTENSION
     Dosage: recent
     Route: 048
  2. METOPROLOL [Concomitant]
     Dosage: chronic
     Route: 048
  3. CLONDLNE [Concomitant]
  4. PRAVASTATIN [Concomitant]
  5. ASA [Concomitant]
  6. PLAVIX [Concomitant]

REACTIONS (5)
  - Swelling face [None]
  - Asthenia [None]
  - Blood pressure increased [None]
  - Angioedema [None]
  - Bradycardia [None]
